FAERS Safety Report 9353748 (Version 1)
Quarter: 2013Q2

REPORT INFORMATION
  Report Type: Spontaneous
  Country: US (occurrence: None)
  Receive Date: 20130617
  Receipt Date: 20130617
  Transmission Date: 20140414
  Serious: Yes (Life-Threatening, Hospitalization)
  Sender: FDA-Public Use
  Company Number: None

PATIENT
  Age: 39 Year
  Sex: Female
  Weight: 72.58 kg

DRUGS (1)
  1. MACROBID [Suspect]
     Indication: URINARY TRACT INFECTION
     Dosage: 100 MG X2 A DAY FOR 7 DAY, 2 CAPSULES-1 EACH DAY PO
     Dates: start: 20130609, end: 20130610

REACTIONS (15)
  - Oropharyngeal pain [None]
  - Dysphonia [None]
  - Hyperhidrosis [None]
  - Hypoaesthesia [None]
  - Paraesthesia [None]
  - Musculoskeletal stiffness [None]
  - Poor quality sleep [None]
  - Chest discomfort [None]
  - Dyspnoea [None]
  - Heart rate increased [None]
  - Fatigue [None]
  - Asthenia [None]
  - Rash [None]
  - Tremor [None]
  - Anxiety [None]
